FAERS Safety Report 23796236 (Version 4)
Quarter: 2024Q2

REPORT INFORMATION
  Report Type: Spontaneous
  Country: JP (occurrence: JP)
  Receive Date: 20240430
  Receipt Date: 20240627
  Transmission Date: 20240716
  Serious: No
  Sender: FDA-Public Use
  Company Number: JP-GSKJP-JP2024JPN052041AA

PATIENT

DRUGS (1)
  1. DAPRODUSTAT [Suspect]
     Active Substance: DAPRODUSTAT
     Indication: Nephrogenic anaemia
     Dosage: 4 MG
     Dates: start: 20240126

REACTIONS (5)
  - Pleural effusion [Unknown]
  - Scrotal oedema [Unknown]
  - Generalised oedema [Unknown]
  - Peripheral swelling [Unknown]
  - Renal disorder [Unknown]

NARRATIVE: CASE EVENT DATE: 20240401
